FAERS Safety Report 10968726 (Version 1)
Quarter: 2015Q1

REPORT INFORMATION
  Report Type: Not Available
  Country: IN (occurrence: IN)
  Receive Date: 20150330
  Receipt Date: 20150330
  Transmission Date: 20150721
  Serious: No
  Sender: FDA-Public Use
  Company Number: IN-LUPIN PHARMACEUTICALS INC.-E2B_00003053

PATIENT
  Age: 35 Year
  Sex: Male

DRUGS (2)
  1. EPILIVE [Suspect]
     Active Substance: LEVETIRACETAM
     Route: 048
  2. EPILIVE [Suspect]
     Active Substance: LEVETIRACETAM
     Indication: EPILEPSY
     Route: 048
     Dates: start: 201412

REACTIONS (4)
  - Hyperhidrosis [Not Recovered/Not Resolved]
  - Restlessness [Not Recovered/Not Resolved]
  - Palpitations [Not Recovered/Not Resolved]
  - Vision blurred [Not Recovered/Not Resolved]

NARRATIVE: CASE EVENT DATE: 201412
